FAERS Safety Report 5736029-0 (Version None)
Quarter: 2008Q2

REPORT INFORMATION
  Report Type: 
  Country: None (occurrence: None)
  Receive Date: 20080513
  Receipt Date: 20080503
  Transmission Date: 20081010
  Serious: Yes (Other)
  Sender: FDA-Public Use
  Company Number: US-AMGEN-US277457

PATIENT
  Sex: Female

DRUGS (8)
  1. ARANESP [Suspect]
     Indication: RENAL FAILURE CHRONIC
     Route: 058
     Dates: start: 20070101
  2. NORVASC [Concomitant]
  3. QUINAPRIL [Concomitant]
  4. XANAX [Concomitant]
  5. ZEMPLAR [Concomitant]
  6. ZYRTEC [Concomitant]
  7. IRON [Concomitant]
  8. HYDROCHLOROTHIAZIDE [Concomitant]

REACTIONS (1)
  - HAEMOGLOBIN DECREASED [None]
